FAERS Safety Report 7201670-5 (Version None)
Quarter: 2010Q4

REPORT INFORMATION
  Report Type: 
  Country: None (occurrence: None)
  Receive Date: 20101229
  Receipt Date: 20101227
  Transmission Date: 20110411
  Serious: Yes (Hospitalization)
  Sender: FDA-Public Use
  Company Number: KR-ROCHE-736200

PATIENT
  Sex: Female

DRUGS (11)
  1. TOCILIZUMAB [Suspect]
     Indication: RHEUMATOID ARTHRITIS
     Route: 041
     Dates: start: 20100601, end: 20101026
  2. BLINDED TOCILIZUMAB [Concomitant]
     Dosage: ROUTE: INTRAVENOUS (NOT OTHERWISE SPECIFIED)
     Route: 042
     Dates: start: 20091217, end: 20100504
  3. METHOTREXATE [Concomitant]
     Route: 048
     Dates: start: 20090708
  4. FOLIC ACID [Concomitant]
     Route: 048
     Dates: start: 20090708
  5. TRIAMCINOLONE [Concomitant]
     Route: 048
     Dates: start: 20090708
  6. CELECOXIB [Concomitant]
     Route: 048
     Dates: start: 20081223, end: 20101010
  7. REBAMIPIDE [Concomitant]
     Route: 048
     Dates: start: 20090708
  8. SIMVASTATIN [Concomitant]
     Route: 048
     Dates: start: 20100209
  9. AMLODIPINE BESYLATE [Concomitant]
     Route: 048
     Dates: start: 20100406
  10. ROXITHROMYCIN [Concomitant]
     Dates: start: 20100719, end: 20100726
  11. PANCREATIN/SIMETICONE/URSODEOXYCHOLIC ACID [Concomitant]
     Dosage: DRUG: PANCREATIN,DIMETHICONE,URSODESOXYCHOLIC ACID
     Route: 048
     Dates: start: 20100719, end: 20100726

REACTIONS (2)
  - GASTRIC ULCER [None]
  - GASTRITIS ATROPHIC [None]
